FAERS Safety Report 6251559-3 (Version None)
Quarter: 2009Q2

REPORT INFORMATION
  Report Type: 
  Country: None (occurrence: None)
  Receive Date: 20090630
  Receipt Date: 20090623
  Transmission Date: 20091009
  Serious: Yes (Hospitalization)
  Sender: FDA-Public Use
  Company Number: US-WATSON-2009-04230

PATIENT
  Sex: Female
  Weight: 98.413 kg

DRUGS (6)
  1. FENTANYL-75 [Suspect]
     Indication: MULTIPLE SCLEROSIS
     Dosage: 1 PATCH Q 3 DAYS
     Route: 062
     Dates: start: 20090520, end: 20090604
  2. FENTANYL-75 [Suspect]
     Indication: FIBROMYALGIA
  3. FENTANYL-75 [Suspect]
     Indication: PAIN
  4. CYMBALTA [Concomitant]
     Indication: DRUG USE FOR UNKNOWN INDICATION
     Dosage: 2 CAPS, DAILY
     Route: 048
  5. AMBIEN [Concomitant]
     Indication: DRUG USE FOR UNKNOWN INDICATION
     Dosage: 2 TABS, DAILY
     Route: 048
  6. TRAZODONE HCL [Concomitant]
     Indication: DRUG USE FOR UNKNOWN INDICATION
     Dosage: 2 TABS, DAILY
     Route: 048

REACTIONS (7)
  - BLOOD PRESSURE DECREASED [None]
  - BLOOD PRESSURE INCREASED [None]
  - HYPOTENSION [None]
  - RENAL DISORDER [None]
  - RENAL PAIN [None]
  - RESPIRATORY DISORDER [None]
  - SEDATION [None]
